FAERS Safety Report 24970440 (Version 2)
Quarter: 2025Q1

REPORT INFORMATION
  Report Type: Spontaneous
  Country: RU (occurrence: RU)
  Receive Date: 20250214
  Receipt Date: 20250228
  Transmission Date: 20250409
  Serious: Yes (Death, Hospitalization, Other)
  Sender: SANDOZ
  Company Number: RU-SANDOZ-SDZ2025RU008895

PATIENT
  Age: 58 Year
  Sex: Female

DRUGS (3)
  1. OLOKIZUMAB [Suspect]
     Active Substance: OLOKIZUMAB
     Indication: Rheumatoid arthritis
     Dosage: 64 MG SC ONCE EVERY 4 WEEKS
     Route: 058
     Dates: start: 202401, end: 202501
  2. METHOTREXATE [Suspect]
     Active Substance: METHOTREXATE
     Indication: Rheumatoid arthritis
     Dosage: 15 MG IM ONCE A WEEK
     Route: 030
  3. METHOTREXATE [Suspect]
     Active Substance: METHOTREXATE
     Indication: Rheumatoid arthritis
     Dosage: 15 MG, QW(15 MG IM ONCE A WEEK)
     Route: 030

REACTIONS (6)
  - Multiple organ dysfunction syndrome [Fatal]
  - Gastric haemorrhage [Fatal]
  - Death [Fatal]
  - Altered state of consciousness [Unknown]
  - Pyrexia [Unknown]
  - Malaise [Unknown]

NARRATIVE: CASE EVENT DATE: 20250206
